FAERS Safety Report 10308220 (Version 9)
Quarter: 2015Q4

REPORT INFORMATION
  Report Type: Report from Study
  Country: US (occurrence: US)
  Receive Date: 20140716
  Receipt Date: 20151113
  Transmission Date: 20160304
  Serious: Yes (Other)
  Sender: FDA-Public Use
  Company Number: US-SA-2014SA072881

PATIENT
  Age: 57 Year
  Sex: Female

DRUGS (3)
  1. PREDNISONE. [Concomitant]
     Active Substance: PREDNISONE
  2. AUBAGIO [Suspect]
     Active Substance: TERIFLUNOMIDE
     Indication: MULTIPLE SCLEROSIS
     Route: 048
     Dates: start: 20140515
  3. COUMADIN [Suspect]
     Active Substance: WARFARIN SODIUM
     Indication: PRODUCT USED FOR UNKNOWN INDICATION
     Route: 065

REACTIONS (14)
  - Peripheral coldness [Unknown]
  - Gait disturbance [Not Recovered/Not Resolved]
  - International normalised ratio increased [Unknown]
  - Multiple sclerosis relapse [Unknown]
  - Fatigue [Unknown]
  - Alopecia [Unknown]
  - Aphasia [Unknown]
  - Diplopia [Not Recovered/Not Resolved]
  - Dizziness [Unknown]
  - Nasopharyngitis [Unknown]
  - Paraesthesia [Not Recovered/Not Resolved]
  - Social phobia [Unknown]
  - Contusion [Unknown]
  - Memory impairment [Unknown]

NARRATIVE: CASE EVENT DATE: 201405
